FAERS Safety Report 9494767 (Version 2)
Quarter: 2013Q3

REPORT INFORMATION
  Report Type: Spontaneous
  Country: NO (occurrence: NO)
  Receive Date: 20130903
  Receipt Date: 20130903
  Transmission Date: 20140515
  Serious: Yes (Other)
  Sender: FDA-Public Use
  Company Number: NO-PFIZER INC-2013192115

PATIENT
  Age: 59 Year
  Sex: Female

DRUGS (1)
  1. NEURONTIN [Suspect]
     Indication: POLYNEUROPATHY
     Dosage: UP TO 3600 MG PER DAY
     Dates: start: 2012, end: 2013

REACTIONS (1)
  - Large intestine polyp [Unknown]
